FAERS Safety Report 23972898 (Version 1)
Quarter: 2024Q2

REPORT INFORMATION
  Report Type: Spontaneous
  Country: US (occurrence: US)
  Receive Date: 20240613
  Receipt Date: 20240613
  Transmission Date: 20240717
  Serious: No
  Sender: FDA-Public Use
  Company Number: US-BAYER-2024A082394

PATIENT
  Age: 71 Year

DRUGS (3)
  1. RIOCIGUAT [Suspect]
     Active Substance: RIOCIGUAT
     Indication: Product used for unknown indication
     Dosage: UNK
     Route: 048
  2. MACITENTAN [Suspect]
     Active Substance: MACITENTAN
     Indication: Pulmonary arterial hypertension
     Dosage: 10 MG
     Route: 048
     Dates: start: 2023
  3. OPSUMIT [Suspect]
     Active Substance: MACITENTAN

REACTIONS (2)
  - Swelling [None]
  - Dyspnoea [Unknown]
